FAERS Safety Report 6666936-6 (Version None)
Quarter: 2010Q2

REPORT INFORMATION
  Report Type: 
  Country: None (occurrence: None)
  Receive Date: 20100405
  Receipt Date: 20100323
  Transmission Date: 20101027
  Serious: Yes (Other)
  Sender: FDA-Public Use
  Company Number: PHHY2010FR18185

PATIENT
  Age: 57 Year
  Sex: Male

DRUGS (10)
  1. DEFERASIROX [Suspect]
     Indication: HAEMOCHROMATOSIS
     Dosage: 1750 MG/DAY
     Dates: start: 20070610
  2. TRILEPTAL [Concomitant]
     Dosage: UNK
     Dates: start: 20020101
  3. NEURONTIN [Concomitant]
     Dosage: UNK
     Dates: start: 20020101
  4. FOLIC ACID [Concomitant]
     Dosage: UNK
     Dates: start: 20030801
  5. VITAMIN B1 TAB [Concomitant]
     Dosage: UNK
     Dates: start: 20030801
  6. TOPIRAMATE [Concomitant]
     Dosage: UNK
     Dates: start: 20040701
  7. LIORESAL [Concomitant]
     Dosage: UNK
     Dates: start: 20040701
  8. EPOGEN [Concomitant]
  9. RED BLOOD CELLS [Concomitant]
     Dosage: UNK
  10. PLATELETS [Concomitant]

REACTIONS (3)
  - LEUKOPENIA [None]
  - MYELOFIBROSIS [None]
  - THROMBOCYTOPENIA [None]
